FAERS Safety Report 5802865-5 (Version None)
Quarter: 2008Q3

REPORT INFORMATION
  Report Type: 
  Country: None (occurrence: None)
  Receive Date: 20080708
  Receipt Date: 20080627
  Transmission Date: 20090109
  Serious: Yes (Life-Threatening, Hospitalization, Disabling, Other)
  Sender: FDA-Public Use
  Company Number: FR-JNJFOC-20080601150

PATIENT
  Age: 52 Year
  Sex: Male
  Weight: 100 kg

DRUGS (4)
  1. REMICADE [Suspect]
     Route: 042
  2. REMICADE [Suspect]
     Indication: DRUG USE FOR UNKNOWN INDICATION
     Route: 042
  3. NON STEROIDAL ANTI-INFLAMMATORIES [Suspect]
     Indication: LUMBAR SPINAL STENOSIS
     Route: 048
  4. HYDROCORTANCYL [Concomitant]
     Indication: LUMBAR SPINAL STENOSIS
     Route: 059

REACTIONS (4)
  - COLITIS COLLAGENOUS [None]
  - DIVERTICULAR PERFORATION [None]
  - INTESTINAL OBSTRUCTION [None]
  - SIGMOIDITIS [None]
